FAERS Safety Report 16271607 (Version 1)
Quarter: 2019Q2

REPORT INFORMATION
  Report Type: Report from Study
  Country: US (occurrence: US)
  Receive Date: 20190506
  Receipt Date: 20190506
  Transmission Date: 20190711
  Serious: Yes (Other)
  Sender: FDA-Public Use
  Company Number: US-BIOGEN-2019BI00732468

PATIENT
  Age: 52 Year
  Sex: Female

DRUGS (1)
  1. TECFIDERA [Suspect]
     Active Substance: DIMETHYL FUMARATE
     Indication: MULTIPLE SCLEROSIS
     Route: 048
     Dates: start: 201310

REACTIONS (15)
  - Monocyte count increased [Not Recovered/Not Resolved]
  - Musculoskeletal disorder [Unknown]
  - Colitis ulcerative [Recovered/Resolved]
  - Cognitive disorder [Not Recovered/Not Resolved]
  - Arthropathy [Unknown]
  - Lymphocyte count decreased [Not Recovered/Not Resolved]
  - Multiple sclerosis relapse [Recovered/Resolved]
  - Morton^s neuralgia [Unknown]
  - Blood urea increased [Not Recovered/Not Resolved]
  - Blood count abnormal [Recovered/Resolved]
  - Flushing [Unknown]
  - Nystagmus [Not Recovered/Not Resolved]
  - Blood urea nitrogen/creatinine ratio increased [Not Recovered/Not Resolved]
  - Plantar fasciitis [Recovered/Resolved]
  - White blood cell count decreased [Recovered/Resolved]

NARRATIVE: CASE EVENT DATE: 201903
